FAERS Safety Report 16811026 (Version 3)
Quarter: 2019Q4

REPORT INFORMATION
  Report Type: Spontaneous
  Country: US (occurrence: US)
  Receive Date: 20190916
  Receipt Date: 20191031
  Transmission Date: 20200122
  Serious: Yes (Other)
  Sender: FDA-Public Use
  Company Number: US-BAYER-2019-164675

PATIENT
  Age: 48 Year
  Sex: Male
  Weight: 99 kg

DRUGS (5)
  1. FLONASE [MOMETASONE FUROATE] [Suspect]
     Active Substance: MOMETASONE FUROATE
     Dosage: UNK
  2. GNC MEN^S HORNY GOAT [Concomitant]
  3. AFRIN SEVERE CONGESTION [Suspect]
     Active Substance: OXYMETAZOLINE HYDROCHLORIDE
     Indication: NASAL CONGESTION
     Dosage: UNK, QID (2-3 SPRAYS IN EACH NOSTRIL )
     Route: 061
  4. AFRIN ORIGINAL [Suspect]
     Active Substance: OXYMETAZOLINE HYDROCHLORIDE
     Dosage: UNK
     Route: 061
  5. AFRIN SEVERE CONGESTION [Suspect]
     Active Substance: OXYMETAZOLINE HYDROCHLORIDE
     Indication: DYSPNOEA

REACTIONS (10)
  - Lacrimation increased [Not Recovered/Not Resolved]
  - Feeling abnormal [Not Recovered/Not Resolved]
  - Inappropriate schedule of product administration [Not Recovered/Not Resolved]
  - Product use issue [Not Recovered/Not Resolved]
  - Therapeutic response shortened [None]
  - Dysgeusia [Not Recovered/Not Resolved]
  - Product lot number issue [None]
  - Dyspnoea [Not Recovered/Not Resolved]
  - Drug dependence [Not Recovered/Not Resolved]
  - Drug ineffective [Not Recovered/Not Resolved]
